FAERS Safety Report 8832056 (Version 2)
Quarter: 2012Q4

REPORT INFORMATION
  Report Type: Report from Study
  Country: FR (occurrence: FR)
  Receive Date: 20121009
  Receipt Date: 20121120
  Transmission Date: 20130627
  Serious: Yes (Other)
  Sender: FDA-Public Use
  Company Number: FR-ROCHE-1142759

PATIENT
  Age: 54 Year
  Sex: Female
  Weight: 63 kg

DRUGS (6)
  1. TENECTEPLASE [Suspect]
     Indication: ACUTE MYOCARDIAL INFARCTION
     Dosage: PERCUTANEOUS CORONARY INTERVENTION
     Route: 065
  2. CLOPIDOGREL [Suspect]
     Indication: ACUTE MYOCARDIAL INFARCTION
     Route: 048
  3. ENOXAPARIN [Suspect]
     Indication: ACUTE MYOCARDIAL INFARCTION
     Route: 058
     Dates: start: 20120706, end: 20120712
  4. ACETYLSALICYLATE LYSINE [Suspect]
     Indication: ACUTE MYOCARDIAL INFARCTION
     Dosage: once
     Route: 042
     Dates: start: 20120706, end: 20120706
  5. ABCIXIMAB [Suspect]
     Indication: ACUTE MYOCARDIAL INFARCTION
     Dosage: bolus and infusion/weight
     Route: 040
     Dates: start: 20120706, end: 20120706
  6. PARACETAMOL [Concomitant]
     Indication: CHEST PAIN
     Dosage: 30 min
     Route: 065
     Dates: start: 20120706, end: 20120706

REACTIONS (1)
  - Haemoglobin decreased [Recovered/Resolved]
